FAERS Safety Report 9190145 (Version 2)
Quarter: 2013Q2

REPORT INFORMATION
  Report Type: Spontaneous
  Country: CA (occurrence: CA)
  Receive Date: 20130326
  Receipt Date: 20130502
  Transmission Date: 20140414
  Serious: Yes (Hospitalization, Other)
  Sender: FDA-Public Use
  Company Number: CA-ASTELLAS-2013US003162

PATIENT
  Age: 47 Year
  Sex: Male

DRUGS (1)
  1. PROGRAF [Suspect]
     Indication: PANCREAS ISLET CELL TRANSPLANT
     Dosage: UNK
     Route: 065
     Dates: start: 2004

REACTIONS (5)
  - Off label use [Unknown]
  - Pancreas islet cell transplant [Unknown]
  - Convulsion [Recovered/Resolved]
  - Stress [Unknown]
  - Hyperhidrosis [Recovered/Resolved]
